FAERS Safety Report 6423772-3 (Version None)
Quarter: 2009Q4

REPORT INFORMATION
  Report Type: 
  Country: None (occurrence: None)
  Receive Date: 20091028
  Receipt Date: 20091016
  Transmission Date: 20100525
  Serious: Yes (Hospitalization, Other)
  Sender: FDA-Public Use
  Company Number: FR-1171267

PATIENT
  Age: 80 Year
  Sex: Female

DRUGS (10)
  1. TRAVATAN [Suspect]
     Dosage: 1 DF QD OPHTHALMIC
     Route: 047
  2. DILTIAZEM [Suspect]
     Dosage: 300 MG QD
  3. ALPHAGAN [Suspect]
     Dosage: 2 DF BID OPHTHALMIC
     Route: 047
  4. PRETERAX (BI PREDONIUM) TABLETS TABLET [Suspect]
     Dosage: ORAL
     Route: 048
     Dates: end: 20081229
  5. ULTRACET [Suspect]
     Dosage: 1 DF BID
  6. PRIMPERAN TAB [Suspect]
     Dosage: 2 DF BID
  7. OSTRAM (CALCIUM PHOSPHATE) [Concomitant]
  8. VALACYCLOVIR HCL [Concomitant]
  9. LEVOTHYROXINE SODIUM [Concomitant]
  10. KARDEGIC (KARDEGIC) [Concomitant]

REACTIONS (3)
  - FALL [None]
  - LOSS OF CONSCIOUSNESS [None]
  - ORTHOSTATIC HYPOTENSION [None]
